FAERS Safety Report 6994092-3 (Version None)
Quarter: 2010Q3

REPORT INFORMATION
  Report Type: 
  Country: None (occurrence: None)
  Receive Date: 20100917
  Receipt Date: 20070608
  Transmission Date: 20110219
  Serious: Yes (Other)
  Sender: FDA-Public Use
  Company Number: US-ASTRAZENECA-2006UW24081

PATIENT
  Age: 20936 Day
  Sex: Male
  Weight: 86 kg

DRUGS (16)
  1. SEROQUEL [Suspect]
     Indication: SLEEP DISORDER
     Route: 048
     Dates: start: 20040101
  2. SEROQUEL [Suspect]
     Indication: SCHIZOPHRENIA
     Route: 048
     Dates: start: 20040101
  3. SEROQUEL [Suspect]
     Dosage: 50 MG TO 600 MG (FLUCTUATING)
     Route: 048
     Dates: start: 20041101
  4. SEROQUEL [Suspect]
     Dosage: 50 MG TO 600 MG (FLUCTUATING)
     Route: 048
     Dates: start: 20041101
  5. ZYPREXA [Suspect]
     Dates: start: 19981001
  6. HALDOL [Concomitant]
     Dosage: 5 MG THREE TIMES A DAY, 10 MG AT NIGHT
     Route: 048
     Dates: start: 19800829
  7. RISPERDAL [Concomitant]
     Route: 048
     Dates: start: 19980903
  8. NEURONTIN [Concomitant]
     Route: 048
     Dates: start: 20040722
  9. COGENTIN [Concomitant]
     Route: 048
     Dates: start: 20050531
  10. ANTIVERT [Concomitant]
     Dates: start: 20050106
  11. LORAZEPAM [Concomitant]
     Dosage: 0.5 MG AT NIGHT PRN
     Route: 048
     Dates: start: 19981001
  12. LYRICA [Concomitant]
     Route: 048
     Dates: start: 20060228
  13. COLACE [Concomitant]
     Dates: start: 20060418
  14. SINGULAIR [Concomitant]
     Route: 048
     Dates: start: 20061214
  15. AMBIEN [Concomitant]
     Dosage: 5 MG TO 10 MG PRN, AT NIGHT
     Route: 048
     Dates: start: 20040507
  16. DEPAKOTE ER [Concomitant]
     Dosage: 500 MG THREE TABS AT NIGHT
     Dates: start: 19980929

REACTIONS (3)
  - DIABETES MELLITUS [None]
  - NEUROLEPTIC MALIGNANT SYNDROME [None]
  - TYPE 2 DIABETES MELLITUS [None]
